FAERS Safety Report 6325151-6 (Version None)
Quarter: 2009Q3

REPORT INFORMATION
  Report Type: 
  Country: None (occurrence: None)
  Receive Date: 20090824
  Receipt Date: 20090629
  Transmission Date: 20100115
  Serious: No
  Sender: FDA-Public Use
  Company Number: US-ABBOTT-09P-163-0582834-00

PATIENT
  Sex: Female
  Weight: 83.99 kg

DRUGS (17)
  1. NIASPAN [Suspect]
     Indication: BLOOD CHOLESTEROL INCREASED
     Route: 048
     Dates: start: 20080701
  2. TRICOR [Concomitant]
     Indication: BLOOD CHOLESTEROL
     Route: 048
  3. METANEX [Concomitant]
     Indication: SUPPLEMENTATION THERAPY
     Route: 048
  4. LEXAPRO [Concomitant]
     Indication: DRUG USE FOR UNKNOWN INDICATION
     Route: 048
  5. DOXAZOSIN MESYLATE [Concomitant]
     Indication: BLOOD PRESSURE
     Route: 048
  6. DIOVAN [Concomitant]
     Indication: BLOOD PRESSURE
     Route: 048
  7. EST-ESTGN METH [Concomitant]
     Indication: HORMONE REPLACEMENT THERAPY
     Dosage: 0.625/1.25 DAILY
     Route: 048
  8. KLOR-CON [Concomitant]
     Indication: ELECTROLYTE SUBSTITUTION THERAPY
  9. CRESTOR [Concomitant]
     Indication: BLOOD CHOLESTEROL INCREASED
     Route: 048
  10. PROTONIX [Concomitant]
     Indication: DYSPEPSIA
     Route: 048
  11. TENUATE DOSPAN [Concomitant]
     Indication: WEIGHT DECREASED
     Route: 048
  12. TRIAMTERENE AND HYDROCHLOROTHIAZIDE [Concomitant]
     Indication: DIURETIC THERAPY
     Dosage: 37.5/25 DAILY
     Route: 048
  13. MULTI-VITAMIN [Concomitant]
     Indication: VITAMIN SUPPLEMENTATION
     Route: 048
  14. ASPIRIN [Concomitant]
     Indication: DRUG USE FOR UNKNOWN INDICATION
     Route: 048
  15. VITAMIN E [Concomitant]
     Indication: MUSCLE SPASMS
     Route: 048
  16. BEE POLLEN [Concomitant]
     Indication: SUPPLEMENTATION THERAPY
     Route: 048
  17. CLEAR LUNGS [Concomitant]
     Indication: TOBACCO USER
     Route: 048

REACTIONS (1)
  - FLUSHING [None]
